FAERS Safety Report 11768339 (Version 9)
Quarter: 2021Q3

REPORT INFORMATION
  Report Type: Report from Study
  Country: PA (occurrence: PA)
  Receive Date: 20151123
  Receipt Date: 20210910
  Transmission Date: 20211014
  Serious: Yes (Life-Threatening, Other)
  Sender: FDA-Public Use
  Company Number: PHHY2015PA151968

PATIENT
  Sex: Female

DRUGS (2)
  1. SOLU?MEDROL [Concomitant]
     Active Substance: METHYLPREDNISOLONE SODIUM SUCCINATE
     Indication: PRODUCT USED FOR UNKNOWN INDICATION
     Route: 065
  2. GILENYA [Suspect]
     Active Substance: FINGOLIMOD HYDROCHLORIDE
     Indication: MULTIPLE SCLEROSIS
     Dosage: 0.5 MG, QD
     Route: 048
     Dates: start: 20150324

REACTIONS (16)
  - Neuralgia [Not Recovered/Not Resolved]
  - Gait disturbance [Unknown]
  - Off label use [Unknown]
  - Movement disorder [Not Recovered/Not Resolved]
  - Reflexes abnormal [Unknown]
  - Lymphopenia [Unknown]
  - Visual impairment [Unknown]
  - Fatigue [Unknown]
  - Immunosuppression [Unknown]
  - Body temperature abnormal [Unknown]
  - Limb discomfort [Unknown]
  - Multiple sclerosis relapse [Not Recovered/Not Resolved]
  - Coordination abnormal [Unknown]
  - Paraesthesia [Unknown]
  - Dizziness [Unknown]
  - Balance disorder [Unknown]
